FAERS Safety Report 5065050-3 (Version None)
Quarter: 2006Q3

REPORT INFORMATION
  Report Type: 
  Country: None (occurrence: None)
  Receive Date: 20060726
  Receipt Date: 20060720
  Transmission Date: 20061208
  Serious: Yes (Hospitalization, Other)
  Sender: FDA-Public Use
  Company Number: 200513989GDS

PATIENT
  Age: 71 Year
  Sex: Female
  Weight: 101 kg

DRUGS (15)
  1. CIPRO [Suspect]
     Indication: DEVICE RELATED INFECTION
     Dosage: 1500 MG, TOTAL DAILY, ORAL
     Route: 048
     Dates: start: 20050615, end: 20050709
  2. CIPRO [Suspect]
     Indication: POSTOPERATIVE INFECTION
     Dosage: 1500 MG, TOTAL DAILY, ORAL
     Route: 048
     Dates: start: 20050615, end: 20050709
  3. CIPRO [Suspect]
     Indication: SEPSIS
     Dosage: 1500 MG, TOTAL DAILY, ORAL
     Route: 048
     Dates: start: 20050615, end: 20050709
  4. PIPERACILLIN [Suspect]
     Indication: DEVICE RELATED INFECTION
     Dosage: 4.5 G, TOTAL DAILY,
     Dates: start: 20050615, end: 20050709
  5. PIPERACILLIN [Suspect]
     Indication: POSTOPERATIVE INFECTION
     Dosage: 4.5 G, TOTAL DAILY,
     Dates: start: 20050615, end: 20050709
  6. PIPERACILLIN [Suspect]
     Indication: SEPSIS
     Dosage: 4.5 G, TOTAL DAILY,
     Dates: start: 20050615, end: 20050709
  7. ASPIRIN [Concomitant]
  8. COUMADIN [Concomitant]
  9. COVERSYL (PERINDOPRIL ERBUMINE) [Concomitant]
  10. FRAGMIN [Concomitant]
  11. INSULIN [Concomitant]
  12. LASIX [Concomitant]
  13. NORVASC [Concomitant]
  14. PANTOPRAZOLE SODIUM [Concomitant]
  15. SYNTHROID [Concomitant]

REACTIONS (5)
  - BLOOD CREATININE INCREASED [None]
  - EXCORIATION [None]
  - LICHENOID KERATOSIS [None]
  - PRURITUS [None]
  - STEVENS-JOHNSON SYNDROME [None]
